FAERS Safety Report 10070826 (Version 4)
Quarter: 2015Q2

REPORT INFORMATION
  Report Type: Spontaneous
  Country: US (occurrence: US)
  Receive Date: 20140410
  Receipt Date: 20150615
  Transmission Date: 20150821
  Serious: Yes (Hospitalization, Other)
  Sender: FDA-Public Use
  Company Number: US-009507513-1404USA005436

PATIENT
  Sex: Female
  Weight: 98.87 kg

DRUGS (1)
  1. JANUVIA [Suspect]
     Active Substance: SITAGLIPTIN PHOSPHATE
     Indication: TYPE 2 DIABETES MELLITUS
     Dosage: 100 MG, QD
     Route: 048
     Dates: start: 20111126, end: 20131030

REACTIONS (27)
  - Arthralgia [Unknown]
  - Back pain [Unknown]
  - Cholecystectomy [Unknown]
  - Haematochezia [Unknown]
  - Off label use [Unknown]
  - Arthralgia [Unknown]
  - Hypertension [Unknown]
  - White blood cell count increased [Unknown]
  - Gastrooesophageal reflux disease [Unknown]
  - Cholelithiasis [Unknown]
  - Constipation [Unknown]
  - Nausea [Unknown]
  - Colectomy [Unknown]
  - Pancreatitis acute [Recovering/Resolving]
  - Osteoarthritis [Unknown]
  - Granuloma [Unknown]
  - Fatigue [Unknown]
  - Pruritus [Unknown]
  - Synovial cyst [Unknown]
  - Headache [Unknown]
  - Myalgia [Unknown]
  - Gastrointestinal disorder [Unknown]
  - Blood cholesterol increased [Unknown]
  - Ankle operation [Unknown]
  - Ovarian cyst [Unknown]
  - Joint effusion [Unknown]
  - Aortic arteriosclerosis [Unknown]

NARRATIVE: CASE EVENT DATE: 20120901
